FAERS Safety Report 21553940 (Version 1)
Quarter: 2022Q4

REPORT INFORMATION
  Report Type: Spontaneous
  Country: US (occurrence: US)
  Receive Date: 20221104
  Receipt Date: 20221104
  Transmission Date: 20230113
  Serious: No
  Sender: FDA-Public Use
  Company Number: US-Accord-267604

PATIENT
  Age: 58 Year
  Sex: Male
  Weight: 115.60 kg

DRUGS (22)
  1. GLIPIZIDE [Suspect]
     Active Substance: GLIPIZIDE
     Indication: Product used for unknown indication
     Dates: end: 20220331
  2. TRAZODONE HYDROCHLORIDE [Suspect]
     Active Substance: TRAZODONE HYDROCHLORIDE
     Indication: Insomnia
     Dates: start: 20220331
  3. MIFEPRISTONE [Suspect]
     Active Substance: MIFEPRISTONE
     Indication: Cushing^s syndrome
     Dosage: QD
     Route: 048
     Dates: start: 20220404, end: 20220417
  4. TORSEMIDE [Suspect]
     Active Substance: TORSEMIDE
     Indication: Oedema
  5. ACTOS [Suspect]
     Active Substance: PIOGLITAZONE HYDROCHLORIDE
     Indication: Product used for unknown indication
  6. ALBUTEROL SULFATE [Concomitant]
     Active Substance: ALBUTEROL SULFATE
  7. FAMOTIDINE [Concomitant]
     Active Substance: FAMOTIDINE
  8. FINASTERIDE [Concomitant]
     Active Substance: FINASTERIDE
  9. HYDROCODONE BITARTRATE AND ACETAMINOPHEN [Concomitant]
     Active Substance: ACETAMINOPHEN\HYDROCODONE BITARTRATE
  10. ICOSAPENT [Concomitant]
     Active Substance: ICOSAPENT
  11. EMPAGLIFLOZIN [Concomitant]
     Active Substance: EMPAGLIFLOZIN
  12. LINACLOTIDE [Concomitant]
     Active Substance: LINACLOTIDE
  13. METFORMIN [Concomitant]
     Active Substance: METFORMIN HYDROCHLORIDE
  14. PRUCALOPRIDE [Concomitant]
     Active Substance: PRUCALOPRIDE
  15. SEMAGLUTIDE [Concomitant]
     Active Substance: SEMAGLUTIDE
  16. RESTASIS [Concomitant]
     Active Substance: CYCLOSPORINE
  17. ROSUVASTATIN [Concomitant]
     Active Substance: ROSUVASTATIN
  18. TIZANIDINE [Concomitant]
     Active Substance: TIZANIDINE
  19. INSULIN DEGLUDEC [Concomitant]
     Active Substance: INSULIN DEGLUDEC
  20. VITAMIN D2 [Concomitant]
     Active Substance: ERGOCALCIFEROL
  21. PIOGLITAZONE [Concomitant]
     Active Substance: PIOGLITAZONE
  22. MIFEPRISTONE [Suspect]
     Active Substance: MIFEPRISTONE
     Indication: Cushing^s syndrome
     Dosage: QD
     Route: 048
     Dates: start: 20220418

REACTIONS (13)
  - Feeling jittery [Not Recovered/Not Resolved]
  - Weight increased [Recovering/Resolving]
  - Palpitations [Not Recovered/Not Resolved]
  - Headache [Recovered/Resolved]
  - Dizziness [Recovering/Resolving]
  - Nausea [Recovering/Resolving]
  - Somnolence [Unknown]
  - Constipation [Not Recovered/Not Resolved]
  - Peripheral swelling [Recovering/Resolving]
  - Blood pressure increased [Unknown]
  - Insomnia [Unknown]
  - Drug interaction [Unknown]
  - Muscle spasms [Not Recovered/Not Resolved]

NARRATIVE: CASE EVENT DATE: 20220404
